FAERS Safety Report 15004641 (Version 1)
Quarter: 2018Q2

REPORT INFORMATION
  Report Type: Spontaneous
  Country: US (occurrence: US)
  Receive Date: 20180521
  Receipt Date: 20180521
  Transmission Date: 20180711
  Serious: Yes (Hospitalization)
  Sender: FDA-Public Use
  Company Number: None

PATIENT
  Age: 76 Year
  Sex: Female
  Weight: 53.9 kg

DRUGS (11)
  1. MEVACOR [Concomitant]
     Active Substance: LOVASTATIN
  2. ULORIC [Concomitant]
     Active Substance: FEBUXOSTAT
  3. LASIX [Concomitant]
     Active Substance: FUROSEMIDE
  4. COREG [Concomitant]
     Active Substance: CARVEDILOL
  5. PRILOSEC [Concomitant]
     Active Substance: OMEPRAZOLE MAGNESIUM
  6. WARFARIN [Concomitant]
     Active Substance: WARFARIN
  7. GLIMEPIRIDE. [Suspect]
     Active Substance: GLIMEPIRIDE
     Indication: DIABETES MELLITUS
     Route: 048
  8. ECOTRIN [Concomitant]
     Active Substance: ASPIRIN
  9. JAKAFI [Concomitant]
     Active Substance: RUXOLITINIB
  10. DURAGESIC [Concomitant]
     Active Substance: FENTANYL
  11. HYZAAR [Concomitant]
     Active Substance: HYDROCHLOROTHIAZIDE\LOSARTAN POTASSIUM

REACTIONS (3)
  - Polycythaemia [None]
  - Hypoglycaemia [None]
  - Weight decreased [None]

NARRATIVE: CASE EVENT DATE: 20180127
